FAERS Safety Report 14612190 (Version 2)
Quarter: 2018Q3

REPORT INFORMATION
  Report Type: Report from Study
  Country: IN (occurrence: IN)
  Receive Date: 20180308
  Receipt Date: 20180705
  Transmission Date: 20181010
  Serious: Yes (Death, Hospitalization)
  Sender: FDA-Public Use
  Company Number: PHHY2018IN035959

PATIENT
  Sex: Female

DRUGS (4)
  1. REVOLADE [Suspect]
     Active Substance: ELTROMBOPAG
     Dosage: 150 MG, QD
     Route: 048
     Dates: start: 20180116, end: 20180307
  2. REVOLADE [Suspect]
     Active Substance: ELTROMBOPAG
     Indication: APLASTIC ANAEMIA
     Dosage: 100 MG, QD
     Route: 048
     Dates: start: 20171215, end: 20171225
  3. REVOLADE [Suspect]
     Active Substance: ELTROMBOPAG
     Dosage: 50 MG, QD
     Route: 048
     Dates: start: 20180308
  4. REVOLADE [Suspect]
     Active Substance: ELTROMBOPAG
     Dosage: 50 MG, QD
     Route: 048
     Dates: start: 20171226, end: 20180115

REACTIONS (10)
  - Renal impairment [Fatal]
  - Chest discomfort [Recovering/Resolving]
  - Pyrexia [Recovered/Resolved]
  - Sepsis [Fatal]
  - Abdominal distension [Fatal]
  - Infection [Recovered/Resolved]
  - Platelet count decreased [Recovered/Resolved]
  - Chest discomfort [Recovered/Resolved]
  - Cardiac arrest [Fatal]
  - Haemorrhage [Recovered/Resolved]

NARRATIVE: CASE EVENT DATE: 20171226
